FAERS Safety Report 5781216-9 (Version None)
Quarter: 2008Q2

REPORT INFORMATION
  Report Type: 
  Country: None (occurrence: None)
  Receive Date: 20080611
  Receipt Date: 20080513
  Transmission Date: 20081010
  Serious: No
  Sender: FDA-Public Use
  Company Number: WSDF_00720

PATIENT
  Age: 45 Year
  Sex: Female
  Weight: 98.7 kg

DRUGS (7)
  1. WINRHO SDF [Suspect]
     Indication: THROMBOCYTOPENIA
     Dosage: 30.4 UG/KG; ONCE; IV
     Route: 042
     Dates: start: 20080408, end: 20080408
  2. POLYGAM [Suspect]
     Indication: THROMBOCYTOPENIA
     Dosage: 40 G ONCE; IV
     Route: 042
     Dates: start: 20080403, end: 20080403
  3. NEXIUM [Concomitant]
  4. HYDROCORTISONE [Concomitant]
  5. METRONIDAZOLE HCL [Concomitant]
  6. VANCOMYCIN [Concomitant]
  7. MICAFUNGIN [Concomitant]

REACTIONS (4)
  - BLOOD LACTATE DEHYDROGENASE INCREASED [None]
  - CARDIAC TAMPONADE [None]
  - HAEMOGLOBIN ABNORMAL [None]
  - INTRAVASCULAR HAEMOLYSIS [None]
